FAERS Safety Report 25213615 (Version 1)
Quarter: 2025Q2

REPORT INFORMATION
  Report Type: Spontaneous
  Country: US (occurrence: None)
  Receive Date: 20250417
  Receipt Date: 20250417
  Transmission Date: 20250717
  Serious: No
  Sender: FDA-CTU
  Company Number: None

PATIENT
  Age: 32 Year
  Sex: Male

DRUGS (1)
  1. TRUVADA [Suspect]
     Active Substance: EMTRICITABINE\TENOFOVIR DISOPROXIL FUMARATE
     Indication: Exposure to communicable disease
     Dosage: OTHER STRENGTH : 200-300MG ;?FREQUENCY : DAILY;?
     Route: 048
     Dates: start: 20241107, end: 20241207

REACTIONS (1)
  - Rash [None]

NARRATIVE: CASE EVENT DATE: 20241107
